FAERS Safety Report 10144708 (Version 2)
Quarter: 2014Q2

REPORT INFORMATION
  Report Type: Spontaneous
  Country: US (occurrence: US)
  Receive Date: 20140430
  Receipt Date: 20140430
  Transmission Date: 20141212
  Serious: No
  Sender: FDA-Public Use
  Company Number: US-SANOFI-AVENTIS-2013SA001163

PATIENT
  Age: 48 Year
  Sex: Male

DRUGS (16)
  1. DEMEROL [Suspect]
  2. ACIPHEX [Concomitant]
     Route: 048
  3. ECOTRIN [Concomitant]
     Route: 048
  4. CELEBREX [Concomitant]
     Route: 048
  5. ZYRTEC [Concomitant]
     Route: 048
  6. ALL OTHER THERAPEUTIC PRODUCTS [Concomitant]
     Route: 048
  7. GLUCOTROL [Concomitant]
     Route: 048
  8. POLY-IRON [Concomitant]
     Route: 048
  9. LIPITOR /UNK/ [Concomitant]
     Route: 048
  10. OMEGA 3 [Concomitant]
     Route: 048
  11. LYRICA [Concomitant]
     Route: 048
  12. ST MARY^S THISTLE [Concomitant]
     Route: 048
  13. JANUMET [Concomitant]
     Route: 048
  14. BACTRIM  DS [Concomitant]
     Route: 048
  15. ULTRAM [Concomitant]
     Route: 048
  16. DIOVAN HCT [Concomitant]
     Route: 048

REACTIONS (1)
  - Drug hypersensitivity [Unknown]
